FAERS Safety Report 9856008 (Version 1)
Quarter: 2014Q1

REPORT INFORMATION
  Report Type: Report from Study
  Country: US (occurrence: US)
  Receive Date: 20140130
  Receipt Date: 20140130
  Transmission Date: 20141002
  Serious: Yes (Hospitalization)
  Sender: FDA-Public Use
  Company Number: US-PFIZER INC-2014021497

PATIENT
  Age: 70 Year
  Sex: Male
  Weight: 82.2 kg

DRUGS (11)
  1. OXALIPLATIN [Suspect]
     Indication: PANCREATIC CARCINOMA METASTATIC
     Dosage: 85 MG/M2, 2 HRS DAY 1, 15 EVERY 28 DAYS
     Route: 042
     Dates: start: 20130923, end: 20131106
  2. FLUOROURACIL [Suspect]
     Indication: PANCREATIC CARCINOMA METASTATIC
     Dosage: 400 MG/M2, PUSH DAYS 1, 15 EVERY 28 DAYS
     Route: 042
     Dates: start: 20130923, end: 20131106
  3. FLUOROURACIL [Suspect]
     Dosage: 2400 MG/M2, CONTINUOUS INFUSION (IV) 46 HRS DAYS 1, 15 EVERY 28 DAYS
     Route: 042
     Dates: start: 20130923, end: 20131106
  4. CALCIUM FOLINATE [Suspect]
     Indication: PANCREATIC CARCINOMA METASTATIC
     Dosage: 400 MG/M2, 2 HRS DAYS 1, 15 EVERY 28 DAYS
     Route: 042
     Dates: start: 20130923, end: 20131106
  5. LEVAQUIN [Concomitant]
     Indication: URINARY TRACT INFECTION
     Dosage: UNK
     Dates: start: 20131111
  6. PLAVIX [Concomitant]
     Dosage: UNK
  7. SIMVASTATIN [Concomitant]
     Dosage: UNK
  8. SPIRIVA [Concomitant]
     Dosage: UNK
  9. ULORIC [Concomitant]
     Dosage: UNK
  10. OMEGA 3 [Concomitant]
     Dosage: UNK
  11. OMEPRAZOLE [Concomitant]
     Dosage: UNK

REACTIONS (4)
  - Hypotension [Recovered/Resolved with Sequelae]
  - Neutrophil count decreased [Recovered/Resolved with Sequelae]
  - Diarrhoea [Recovered/Resolved with Sequelae]
  - Duodenal ulcer [Unknown]
